FAERS Safety Report 5477309-6 (Version None)
Quarter: 2007Q4

REPORT INFORMATION
  Report Type: 
  Country: None (occurrence: None)
  Receive Date: 20071004
  Receipt Date: 20070926
  Transmission Date: 20080405
  Serious: Yes (Other)
  Sender: FDA-Public Use
  Company Number: NZ-ASTRAZENECA-2007AP06071

PATIENT
  Age: 56 Year
  Sex: Male
  Weight: 65 kg

DRUGS (4)
  1. ATACAND [Suspect]
     Indication: HYPERTENSION
     Route: 048
     Dates: start: 20070711, end: 20070809
  2. ATACAND [Suspect]
     Route: 048
     Dates: start: 20070907, end: 20070914
  3. METOPROLOL CR [Concomitant]
     Indication: HYPERTENSION
     Route: 048
     Dates: start: 20070205
  4. ASPIRIN [Concomitant]
     Indication: THROMBOSIS PROPHYLAXIS
     Route: 048
     Dates: start: 20070205

REACTIONS (1)
  - SKIN DISORDER [None]
